FAERS Safety Report 4289097-X (Version None)
Quarter: 2004Q1

REPORT INFORMATION
  Report Type: 
  Country: None (occurrence: None)
  Receive Date: 20040126
  Receipt Date: 20031103
  Transmission Date: 20041129
  Serious: No
  Sender: FDA-Public Use
  Company Number: USA030332442

PATIENT
  Age: 71 Year
  Sex: Female
  Weight: 46 kg

DRUGS (8)
  1. FORTEO [Suspect]
     Indication: OSTEOPOROSIS
     Dosage: 20 UG/DAY
     Dates: start: 20030320
  2. ASPIRIN [Concomitant]
  3. EXCEDRIN [Concomitant]
  4. ESTRADIOL [Concomitant]
  5. VITAMIN D [Concomitant]
  6. ZYRTEC [Concomitant]
  7. HYDROCHLOROTHIAZIDE [Concomitant]
  8. CALCIUM [Concomitant]

REACTIONS (7)
  - ADVERSE DRUG REACTION [None]
  - ASPARTATE AMINOTRANSFERASE INCREASED [None]
  - BLADDER PAIN [None]
  - DIZZINESS [None]
  - HYPERCALCAEMIA [None]
  - ILL-DEFINED DISORDER [None]
  - PAIN [None]
